FAERS Safety Report 20342997 (Version 1)
Quarter: 2022Q1

REPORT INFORMATION
  Report Type: Other
  Country: AU (occurrence: None)
  Receive Date: 20220117
  Receipt Date: 20220117
  Transmission Date: 20220424
  Serious: No
  Sender: FDA-Public Use
  Company Number: AU-ROCHE-3003281

PATIENT
  Age: 37 Year
  Sex: Male

DRUGS (1)
  1. OCREVUS [Suspect]
     Active Substance: OCRELIZUMAB
     Indication: Relapsing-remitting multiple sclerosis
     Dosage: PATIENT HAS COMPLETED FIRST 3OOMG INTRO DOSE
     Route: 041
     Dates: start: 20220106

REACTIONS (1)
  - COVID-19 [Recovering/Resolving]

NARRATIVE: CASE EVENT DATE: 20220110
